FAERS Safety Report 7303984-7 (Version None)
Quarter: 2011Q1

REPORT INFORMATION
  Report Type: 
  Country: None (occurrence: None)
  Receive Date: 20110221
  Receipt Date: 20110210
  Transmission Date: 20110831
  Serious: Yes (Hospitalization, Other)
  Sender: FDA-Public Use
  Company Number: US-ASTRAZENECA-2011SE07256

PATIENT
  Age: 41 Year
  Sex: Female
  Weight: 91.6 kg

DRUGS (3)
  1. SEROQUEL [Suspect]
     Route: 048
  2. SEROQUEL [Suspect]
     Indication: BIPOLAR II DISORDER
     Route: 048
     Dates: start: 20060101, end: 20110203
  3. SINGULAIR [Concomitant]

REACTIONS (13)
  - GASTRIC BYPASS [None]
  - SUICIDAL IDEATION [None]
  - NAUSEA [None]
  - DEHYDRATION [None]
  - DRUG WITHDRAWAL SYNDROME [None]
  - FACIAL OPERATION [None]
  - DIARRHOEA [None]
  - FLUSHING [None]
  - MOOD ALTERED [None]
  - VOMITING [None]
  - DRUG DOSE OMISSION [None]
  - BIPOLAR DISORDER [None]
  - DIZZINESS [None]
